FAERS Safety Report 5584553-6 (Version None)
Quarter: 2008Q1

REPORT INFORMATION
  Report Type: 
  Country: None (occurrence: None)
  Receive Date: 20080103
  Receipt Date: 20071219
  Transmission Date: 20080703
  Serious: Yes (Other)
  Sender: FDA-Public Use
  Company Number: GXKR2007GB10891

PATIENT
  Age: 20 Year
  Sex: Male
  Weight: 45 kg

DRUGS (2)
  1. ACETAMINOPHEN [Suspect]
     Dosage: 1 G, QID, 10 DOSES
  2. CARBAMAZEPINE [Suspect]
     Indication: CONVULSION

REACTIONS (3)
  - ACUTE HEPATIC FAILURE [None]
  - DRUG INTERACTION [None]
  - ENCEPHALOPATHY [None]
